FAERS Safety Report 6618278 (Version 3)
Quarter: 2015Q1

REPORT INFORMATION
  Report Type: Report from Study
  Country: KR (occurrence: KR)
  Receive Date: 20080418
  Receipt Date: 20150101
  Transmission Date: 20150721
  Serious: Yes (Hospitalization)
  Sender: FDA-Public Use
  Company Number: KR-ROCHE-557211

PATIENT
  Age: 72 Year
  Sex: Male
  Weight: 80 kg

DRUGS (16)
  1. GINKGO BILOBA [Concomitant]
     Active Substance: GINKGO
     Dosage: DRUG NAME REPORTED AS GINKGO BILOBA EXT.
     Route: 065
     Dates: start: 20080311, end: 20080323
  2. SODIUM POLYSTYRENE SULFONATE. [Concomitant]
     Active Substance: SODIUM POLYSTYRENE SULFONATE
     Dosage: DRUG NAME REPORTED AS POLYSTYRENE SULFONATE CALCIUM.
     Route: 065
     Dates: start: 20080311, end: 20080323
  3. PLACEBO [Suspect]
     Active Substance: UNSPECIFIED INGREDIENT
     Indication: GASTRIC CANCER
     Dosage: DOSE BLINDED, DOSAGE FORM REPORTED AS INFUSION AND FREQUENCY AS D1Q3W AND ROUTE IV
     Route: 042
     Dates: start: 20080307
  4. TRIMETAZIDINE HCL [Concomitant]
     Active Substance: TRIMETAZIDINE
     Route: 065
     Dates: start: 20080315, end: 20080322
  5. CAPECITABINE. [Suspect]
     Active Substance: CAPECITABINE
     Indication: GASTRIC CANCER
     Dosage: UNIT REPORTED AS 2000MG , FREQUENCY D1-14Q3W BID AND ROUTE AS BID PO.
     Route: 048
  6. NICORANDIL [Concomitant]
     Active Substance: NICORANDIL
     Route: 065
     Dates: start: 20040615, end: 20080322
  7. BROMHEXINE HCL [Concomitant]
     Active Substance: BROMHEXINE HYDROCHLORIDE
     Route: 065
     Dates: start: 20080311, end: 20080323
  8. LANSOPRAZOLE. [Concomitant]
     Active Substance: LANSOPRAZOLE
     Route: 065
     Dates: start: 20080311, end: 20080322
  9. SUCRALFATE. [Concomitant]
     Active Substance: SUCRALFATE
     Dosage: DRUG NAME REPORTED AS SUCRALFAGE SUSPENSION
     Route: 065
     Dates: start: 20080311, end: 20080322
  10. ASPIRIN. [Concomitant]
     Active Substance: ASPIRIN
     Route: 065
     Dates: start: 20080315, end: 20080322
  11. ALLEGRA-D [Concomitant]
     Active Substance: FEXOFENADINE\PSEUDOEPHEDRINE
     Dosage: TTD REPORTED AS ^2T^
     Route: 065
     Dates: start: 20080311, end: 20080322
  12. ATACAND PLUS [Concomitant]
     Active Substance: CANDESARTAN CILEXETIL\HYDROCHLOROTHIAZIDE
     Dosage: TDD REPORTED AS ^1T^
     Route: 065
     Dates: start: 20080315, end: 20080322
  13. MEGESTROL ACETATE. [Concomitant]
     Active Substance: MEGESTROL ACETATE
     Dosage: FORM STRENGTH=40 MG/ML
     Route: 065
     Dates: start: 20080311, end: 20080323
  14. CISPLATIN. [Suspect]
     Active Substance: CISPLATIN
     Indication: GASTRIC CANCER
     Dosage: FREQUENCY REPORTED AS D1Q3W. DOSAGE FORM AS INFUSION.UNITS AS 155 MG
     Route: 042
  15. UNKNOWN MEDICATION [Concomitant]
     Active Substance: UNSPECIFIED INGREDIENT
     Dosage: TTD REPORTED AS ^ 1T^
     Route: 065
     Dates: start: 20080312, end: 20080322
  16. METFORMIN [Concomitant]
     Active Substance: METFORMIN HYDROCHLORIDE
     Route: 065
     Dates: start: 20080315, end: 20080322

REACTIONS (1)
  - Acute kidney injury [Recovered/Resolved with Sequelae]

NARRATIVE: CASE EVENT DATE: 20080311
